FAERS Safety Report 13709409 (Version 3)
Quarter: 2018Q1

REPORT INFORMATION
  Report Type: Spontaneous
  Country: IT (occurrence: IT)
  Receive Date: 20170703
  Receipt Date: 20180307
  Transmission Date: 20180508
  Serious: Yes (Hospitalization)
  Sender: FDA-Public Use
  Company Number: IT-ROCHE-1957000

PATIENT
  Age: 32 Year
  Sex: Female

DRUGS (7)
  1. TAVOR (LORAZEPAM) [Concomitant]
     Active Substance: LORAZEPAM
     Route: 065
  2. CARBOLITHIUM [Concomitant]
     Active Substance: LITHIUM CARBONATE
     Route: 065
  3. ZOLOFT [Concomitant]
     Active Substance: SERTRALINE HYDROCHLORIDE
     Route: 065
  4. DEPAKIN [Concomitant]
     Active Substance: VALPROATE SODIUM
     Route: 065
  5. VALIUM [Suspect]
     Active Substance: DIAZEPAM
     Indication: ANXIETY
     Dosage: 5 MG/ML ORAL DROPS, SOLUTION BOTTLE
     Route: 048
     Dates: start: 20170320, end: 20170320
  6. FLURAZEPAM [Concomitant]
     Active Substance: FLURAZEPAM\FLURAZEPAM HYDROCHLORIDE
     Route: 065
  7. ABILIFY [Concomitant]
     Active Substance: ARIPIPRAZOLE

REACTIONS (4)
  - Drug abuse [Unknown]
  - Oxygen saturation decreased [Unknown]
  - Intentional self-injury [Unknown]
  - Tachycardia [Unknown]

NARRATIVE: CASE EVENT DATE: 20170320
